FAERS Safety Report 5566342-1 (Version None)
Quarter: 2007Q4

REPORT INFORMATION
  Report Type: 
  Country: None (occurrence: None)
  Receive Date: 20071219
  Receipt Date: 20071217
  Transmission Date: 20080405
  Serious: Yes (Hospitalization)
  Sender: FDA-Public Use
  Company Number: DE-WYE-G00786707

PATIENT
  Sex: Female
  Weight: 60 kg

DRUGS (2)
  1. TREVILOR RETARD [Suspect]
     Dosage: 5 CAPSULES (TOTAL AMOUNT 750 MG)
     Route: 048
     Dates: start: 20071215, end: 20071215
  2. ETHANOL [Suspect]
     Dosage: 4 LITERS RED WINE (TOTAL ALCOHOL AMOUNT UNKNOWN)
     Route: 048
     Dates: start: 20071215, end: 20071215

REACTIONS (3)
  - AGITATION [None]
  - DRUG ABUSE [None]
  - INTENTIONAL OVERDOSE [None]
